FAERS Safety Report 22587445 (Version 1)
Quarter: 2023Q2

REPORT INFORMATION
  Report Type: Spontaneous
  Country: FR (occurrence: FR)
  Receive Date: 20230612
  Receipt Date: 20230612
  Transmission Date: 20230721
  Serious: Yes (Hospitalization)
  Sender: FDA-Public Use
  Company Number: FR-ABBVIE-5281456

PATIENT
  Age: 35 Year
  Sex: Female

DRUGS (3)
  1. BOTOX [Suspect]
     Active Substance: ONABOTULINUMTOXINA
     Indication: Muscle spasticity
     Dosage: TIME INTERVAL: AS NECESSARY: ROUTE OF ADMINISTRATION: INJECTION
     Route: 065
  2. BOTOX [Suspect]
     Active Substance: ONABOTULINUMTOXINA
     Indication: Muscle spasticity
     Dosage: TIME INTERVAL: AS NECESSARY: ROUTE OF ADMINISTRATION: INJECTION
     Route: 065
  3. BOTOX [Suspect]
     Active Substance: ONABOTULINUMTOXINA
     Indication: Muscle spasticity
     Dosage: TIME INTERVAL: AS NECESSARY: ROUTE OF ADMINISTRATION: INJECTION
     Route: 065

REACTIONS (10)
  - Muscle rigidity [Not Recovered/Not Resolved]
  - Multiple sclerosis [Unknown]
  - Muscle spasticity [Not Recovered/Not Resolved]
  - Autonomic nervous system imbalance [Unknown]
  - Mobility decreased [Unknown]
  - Skin ulcer [Unknown]
  - Decubitus ulcer [Unknown]
  - Developmental regression [Unknown]
  - Loss of personal independence in daily activities [Unknown]
  - Therapeutic product effect incomplete [Unknown]

NARRATIVE: CASE EVENT DATE: 20230501
